FAERS Safety Report 5324200-1 (Version None)
Quarter: 2007Q2

REPORT INFORMATION
  Report Type: 
  Country: None (occurrence: None)
  Receive Date: 20070507
  Receipt Date: 20070502
  Transmission Date: 20071010
  Serious: No
  Sender: FDA-Public Use
  Company Number: 2007-01765

PATIENT
  Age: 9 Year
  Sex: Female
  Weight: 30 kg

DRUGS (1)
  1. TRELSTAR DEPOT [Suspect]
     Indication: PRECOCIOUS PUBERTY
     Dosage: 3 MG, EVERY 28 DAYS, INTRAMUSCULAR
     Route: 030
     Dates: start: 20050101, end: 20051101

REACTIONS (4)
  - ANGIOEDEMA [None]
  - CROSS SENSITIVITY REACTION [None]
  - DRUG HYPERSENSITIVITY [None]
  - URTICARIA [None]
